FAERS Safety Report 13072246 (Version 5)
Quarter: 2017Q3

REPORT INFORMATION
  Report Type: Report from Study
  Country: US (occurrence: US)
  Receive Date: 20161229
  Receipt Date: 20170912
  Transmission Date: 20171127
  Serious: Yes (Hospitalization)
  Sender: FDA-Public Use
  Company Number: US-ACTELION-A-NJ2016-147487

PATIENT
  Age: 91 Year
  Sex: Female
  Weight: 82.54 kg

DRUGS (5)
  1. NIFEDIPINE. [Concomitant]
     Active Substance: NIFEDIPINE
  2. ELIQUIS [Concomitant]
     Active Substance: APIXABAN
  3. XARELTO [Concomitant]
     Active Substance: RIVAROXABAN
  4. ADCIRCA [Concomitant]
     Active Substance: TADALAFIL
  5. TRACLEER [Suspect]
     Active Substance: BOSENTAN
     Indication: PULMONARY HYPERTENSION
     Dosage: 62.5 MG, BID
     Route: 048
     Dates: start: 20100812

REACTIONS (10)
  - Malaise [Unknown]
  - Muscle strain [Unknown]
  - Cardiac disorder [Unknown]
  - Dyspnoea exertional [Unknown]
  - Asthenia [Unknown]
  - Dyspnoea [Unknown]
  - Complication associated with device [Unknown]
  - Balance disorder [Unknown]
  - Myocardial infarction [Unknown]
  - Dizziness [Unknown]
